FAERS Safety Report 21308610 (Version 2)
Quarter: 2023Q1

REPORT INFORMATION
  Report Type: Report from Study
  Country: CA (occurrence: CA)
  Receive Date: 20220908
  Receipt Date: 20230224
  Transmission Date: 20230417
  Serious: Yes (Other)
  Sender: FDA-Public Use
  Company Number: CA-JNJFOC-20220602233

PATIENT
  Age: 51 Year
  Sex: Male
  Weight: 82.174 kg

DRUGS (1)
  1. REMICADE [Suspect]
     Active Substance: INFLIXIMAB
     Indication: Crohn^s disease
     Dosage: EXPIRY DATE IN V1:01-DEC-2024?EXPIRY DATE: V2: 01-JUN-2025
     Route: 041

REACTIONS (4)
  - Cellulitis [Not Recovered/Not Resolved]
  - Eye infection [Recovering/Resolving]
  - Squamous cell carcinoma of skin [Not Recovered/Not Resolved]
  - Off label use [Unknown]

NARRATIVE: CASE EVENT DATE: 20220425
